FAERS Safety Report 15051586 (Version 6)
Quarter: 2018Q4

REPORT INFORMATION
  Report Type: Report from Study
  Country: US (occurrence: US)
  Receive Date: 20180622
  Receipt Date: 20181231
  Transmission Date: 20190204
  Serious: Yes (Hospitalization, Other)
  Sender: FDA-Public Use
  Company Number: US-JNJFOC-20180627783

PATIENT
  Sex: Male

DRUGS (21)
  1. IMBRUVICA [Concomitant]
     Active Substance: IBRUTINIB
     Indication: WALDENSTROM^S MACROGLOBULINAEMIA
     Route: 048
     Dates: start: 20180220, end: 20180420
  2. DIAZEPAM. [Concomitant]
     Active Substance: DIAZEPAM
  3. IMBRUVICA [Suspect]
     Active Substance: IBRUTINIB
     Indication: WALDENSTROM^S MACROGLOBULINAEMIA
     Route: 048
     Dates: start: 20180420
  4. IMBRUVICA [Suspect]
     Active Substance: IBRUTINIB
     Indication: CEREBRAL DISORDER
     Route: 048
     Dates: start: 20180420
  5. SEROQUEL [Suspect]
     Active Substance: QUETIAPINE FUMARATE
     Indication: SUICIDE ATTEMPT
     Dosage: 40 UNK, UNK
     Route: 065
  6. ATOVAQUONE. [Concomitant]
     Active Substance: ATOVAQUONE
  7. IMBRUVICA [Suspect]
     Active Substance: IBRUTINIB
     Indication: WALDENSTROM^S MACROGLOBULINAEMIA
     Route: 048
     Dates: start: 20180421, end: 2018
  8. HYDROXYZINE HCL [Concomitant]
     Active Substance: HYDROXYZINE HYDROCHLORIDE
  9. IBUPROFEN. [Concomitant]
     Active Substance: IBUPROFEN
  10. DESVENLAFAXINE. [Concomitant]
     Active Substance: DESVENLAFAXINE
  11. VICODIN [Suspect]
     Active Substance: ACETAMINOPHEN\HYDROCODONE BITARTRATE
     Indication: SUICIDE ATTEMPT
     Route: 065
  12. IMBRUVICA [Concomitant]
     Active Substance: IBRUTINIB
     Indication: CEREBRAL DISORDER
     Route: 048
     Dates: start: 20180219
  13. LOSARTAN. [Concomitant]
     Active Substance: LOSARTAN
  14. MIRTAZAPINE. [Concomitant]
     Active Substance: MIRTAZAPINE
  15. TRAZODONE [Concomitant]
     Active Substance: TRAZODONE HYDROCHLORIDE
  16. IMBRUVICA [Concomitant]
     Active Substance: IBRUTINIB
     Indication: WALDENSTROM^S MACROGLOBULINAEMIA
     Route: 048
     Dates: start: 20180219
  17. IMBRUVICA [Concomitant]
     Active Substance: IBRUTINIB
     Indication: CEREBRAL DISORDER
     Route: 048
     Dates: start: 20180220, end: 20180420
  18. CLONAZEPAM. [Concomitant]
     Active Substance: CLONAZEPAM
  19. METHOCARBAMOL. [Concomitant]
     Active Substance: METHOCARBAMOL
  20. KLONOPIN [Concomitant]
     Active Substance: CLONAZEPAM
  21. IMBRUVICA [Suspect]
     Active Substance: IBRUTINIB
     Indication: CEREBRAL DISORDER
     Route: 048
     Dates: start: 20180421, end: 2018

REACTIONS (7)
  - Psychiatric symptom [Unknown]
  - Haemorrhage [Unknown]
  - Suicide attempt [Unknown]
  - Glaucoma [Unknown]
  - Anxiety [Unknown]
  - Paranoia [Unknown]
  - Depression [Unknown]

NARRATIVE: CASE EVENT DATE: 2018
